FAERS Safety Report 15506728 (Version 1)
Quarter: 2018Q4

REPORT INFORMATION
  Report Type: Spontaneous
  Country: BR (occurrence: BR)
  Receive Date: 20181016
  Receipt Date: 20181016
  Transmission Date: 20190205
  Serious: Yes (Other)
  Sender: FDA-Public Use
  Company Number: BR-PFIZER INC-2018416134

PATIENT
  Sex: Male

DRUGS (1)
  1. ELIFORE [Suspect]
     Active Substance: DESVENLAFAXINE SUCCINATE
     Indication: DEPRESSION
     Dosage: UNK

REACTIONS (4)
  - Crohn^s disease [Unknown]
  - Product residue present [Unknown]
  - Colitis ulcerative [Unknown]
  - Product solubility abnormal [Unknown]
